FAERS Safety Report 4518858-4 (Version None)
Quarter: 2004Q4

REPORT INFORMATION
  Report Type: 
  Country: None (occurrence: None)
  Receive Date: 20041201
  Receipt Date: 20041118
  Transmission Date: 20050328
  Serious: Yes (Hospitalization, Other)
  Sender: FDA-Public Use
  Company Number: KII-2004-0014025

PATIENT
  Sex: Female

DRUGS (7)
  1. OXYCONTIN [Suspect]
     Dosage: ORAL
     Route: 048
  2. CARBAMAZEPINE [Suspect]
     Dosage: ORAL
     Route: 048
  3. PHENOBARBITAL TAB [Suspect]
     Dosage: ORAL
     Route: 048
  4. ACETAMINOPHEN [Suspect]
     Dosage: ORAL
     Route: 048
  5. PHENYTOIN [Concomitant]
  6. CARISOPRODOL [Concomitant]
  7. BENZODIAZEPINE DERIVATIVES [Concomitant]

REACTIONS (6)
  - BARBITURATES POSITIVE [None]
  - COMA [None]
  - HEART RATE INCREASED [None]
  - HYPOTENSION [None]
  - LETHARGY [None]
  - OPIATES POSITIVE [None]
